FAERS Safety Report 15892135 (Version 1)
Quarter: 2019Q1

REPORT INFORMATION
  Report Type: Report from Study
  Country: US (occurrence: US)
  Receive Date: 20190130
  Receipt Date: 20190130
  Transmission Date: 20190417
  Serious: No
  Sender: FDA-Public Use
  Company Number: US-EXELIXIS-CABO-18014559

PATIENT
  Age: 73 Year
  Sex: Male

DRUGS (1)
  1. CABOMETYX [Suspect]
     Active Substance: CABOZANTINIB S-MALATE
     Indication: RENAL CANCER
     Dosage: 40 MG, QD, AM WITHOUT FOOD
     Dates: start: 20180524

REACTIONS (6)
  - Oral discomfort [Recovering/Resolving]
  - Glossitis [Unknown]
  - White blood cell count decreased [Unknown]
  - Stomatitis [Not Recovered/Not Resolved]
  - Blood pressure increased [Unknown]
  - Dry mouth [Recovering/Resolving]

NARRATIVE: CASE EVENT DATE: 2018
